FAERS Safety Report 19052235 (Version 3)
Quarter: 2021Q2

REPORT INFORMATION
  Report Type: Report from Study
  Country: KR (occurrence: KR)
  Receive Date: 20210324
  Receipt Date: 20210504
  Transmission Date: 20210717
  Serious: Yes (Hospitalization)
  Sender: FDA-Public Use
  Company Number: KR-ROCHE-2795890

PATIENT
  Age: 66 Year
  Sex: Male
  Weight: 55.7 kg

DRUGS (8)
  1. 5?FLUOROURACIL [Suspect]
     Active Substance: FLUOROURACIL
     Indication: OESOPHAGEAL CARCINOMA
     Dosage: ON 10/MAR/2021, HE RECEIVED THE MOST RECENT DOE OF 5?FU (1000 UNIT NOT REPORTED) PRIOR TO SAE.
     Route: 042
     Dates: start: 20210310
  2. 5?FLUOROURACIL [Suspect]
     Active Substance: FLUOROURACIL
     Indication: GASTRIC CANCER
  3. CISPLATIN. [Suspect]
     Active Substance: CISPLATIN
     Indication: OESOPHAGEAL CARCINOMA
     Dosage: ON 10/MAR/2021, HE RECEIVED THE MOST RECENT DOE OF CISPLATIN (80 UNIT NOT REPORTED) PRIOR TO SAE.
     Route: 042
     Dates: start: 20210310
  4. ATEZOLIZUMAB. [Suspect]
     Active Substance: ATEZOLIZUMAB
     Indication: OESOPHAGEAL CARCINOMA
     Dosage: ON 10/MAR/2021, HE RECEIVED THE MOST RECENT DOE OF ATEZOLIZUMAB 1200 MG PRIOR TO SERIOUS ADVERSE EVE
     Route: 041
     Dates: start: 20210310
  5. CISPLATIN. [Suspect]
     Active Substance: CISPLATIN
     Indication: GASTRIC CANCER
  6. FENTANYL. [Concomitant]
     Active Substance: FENTANYL
     Dates: start: 20210219
  7. ATEZOLIZUMAB. [Suspect]
     Active Substance: ATEZOLIZUMAB
     Indication: GASTRIC CANCER
  8. ENCOVER [Concomitant]
     Dates: start: 20210219

REACTIONS (1)
  - Blood creatinine increased [Recovered/Resolved]

NARRATIVE: CASE EVENT DATE: 20210317
